FAERS Safety Report 8144572-2 (Version None)
Quarter: 2012Q1

REPORT INFORMATION
  Report Type: 
  Country: None (occurrence: None)
  Receive Date: 20120217
  Receipt Date: 20120203
  Transmission Date: 20120608
  Serious: Yes (Hospitalization)
  Sender: FDA-Public Use
  Company Number: IT-ROCHE-1027480

PATIENT
  Sex: Male

DRUGS (4)
  1. ROCEPHIN [Concomitant]
     Dosage: 1 GM/3.5 ML  POWDER
     Dates: start: 20111211, end: 20111212
  2. TERAPROST [Concomitant]
     Route: 048
     Dates: start: 20111201, end: 20111212
  3. VOLTAREN [Suspect]
     Indication: BACK PAIN
     Route: 030
     Dates: start: 20111208, end: 20111212
  4. TORADOL [Suspect]
     Indication: BACK PAIN
     Route: 030
     Dates: start: 20111208, end: 20111212

REACTIONS (3)
  - EROSIVE DUODENITIS [None]
  - HAEMOGLOBIN DECREASED [None]
  - HAEMATOCRIT DECREASED [None]
